FAERS Safety Report 6842471-7 (Version None)
Quarter: 2010Q3

REPORT INFORMATION
  Report Type: 
  Country: None (occurrence: None)
  Receive Date: 20100714
  Receipt Date: 20070926
  Transmission Date: 20110219
  Serious: No
  Sender: FDA-Public Use
  Company Number: US-PFIZER INC-2007062724

PATIENT
  Sex: Female
  Weight: 109.1 kg

DRUGS (6)
  1. CHANTIX [Suspect]
     Indication: SMOKING CESSATION THERAPY
     Route: 048
     Dates: start: 20070723, end: 20070723
  2. LASIX [Concomitant]
  3. SOMA [Concomitant]
  4. PERCOCET [Concomitant]
     Indication: BACK PAIN
  5. OXYCONTIN [Concomitant]
  6. ALLERGY MEDICATION [Concomitant]

REACTIONS (2)
  - DYSPHONIA [None]
  - MYALGIA [None]
